FAERS Safety Report 5714325-0 (Version None)
Quarter: 2008Q2

REPORT INFORMATION
  Report Type: 
  Country: None (occurrence: None)
  Receive Date: 20080421
  Receipt Date: 20080408
  Transmission Date: 20081010
  Serious: Yes (Disabling)
  Sender: FDA-Public Use
  Company Number: UKP08000054

PATIENT
  Age: 67 Year
  Sex: Female

DRUGS (12)
  1. ACTONEL [Suspect]
     Dosage: 35 MG,  ORAL
     Route: 048
     Dates: start: 20041122, end: 20080301
  2. BONVIVA/01304701/ (IBANDRONIC ACID) [Suspect]
  3. ENBREL [Concomitant]
  4. PREDNISOLONE [Concomitant]
  5. SURMONTIL /00051801/ (TRIMIPRAMINE) [Concomitant]
  6. EFFEXOR XR [Concomitant]
  7. IDEOS /00108001/ (CALCIUM CARBONATE) [Concomitant]
  8. LIPITOR [Concomitant]
  9. METHOTREXATE [Concomitant]
  10. ZIMOVANE (ZOPICLONE) [Concomitant]
  11. FOLIC ACID [Concomitant]
  12. LEVOTHYROXINE SODIUM [Concomitant]

REACTIONS (3)
  - GLOSSODYNIA [None]
  - JOINT DISLOCATION [None]
  - PAIN IN JAW [None]
